FAERS Safety Report 9995639 (Version 1)
Quarter: 2014Q1

REPORT INFORMATION
  Report Type: Spontaneous
  Country: US (occurrence: None)
  Receive Date: 20140307
  Receipt Date: 20140307
  Transmission Date: 20141002
  Serious: Yes (Death, Hospitalization)
  Sender: FDA-Public Use
  Company Number: None

PATIENT
  Age: 30 Year
  Sex: Female

DRUGS (1)
  1. NUVA RING [Suspect]
     Indication: CONTRACEPTION
     Dosage: 1 RING --  VAGINAL
     Route: 067

REACTIONS (2)
  - Thrombosis [None]
  - Pulmonary thrombosis [None]
